FAERS Safety Report 7905009-9 (Version None)
Quarter: 2011Q4

REPORT INFORMATION
  Report Type: 
  Country: None (occurrence: None)
  Receive Date: 20111109
  Receipt Date: 20111102
  Transmission Date: 20120403
  Serious: Yes (Death, Other)
  Sender: FDA-Public Use
  Company Number: PHHY2011JP86374

PATIENT
  Sex: Male

DRUGS (15)
  1. DIOVAN [Suspect]
     Dosage: 160 MG, UNK
     Route: 048
     Dates: start: 20090918, end: 20110202
  2. CARVEDILOL [Concomitant]
     Indication: HYPERTENSION
     Dosage: 3 DF, UNK
     Route: 048
     Dates: start: 20090708
  3. DIOVAN [Suspect]
     Dosage: 80 MG, UNK
     Route: 048
     Dates: start: 20090820, end: 20090917
  4. TRICHLORMETHIAZIDE [Concomitant]
     Indication: HYPERTENSION
     Dosage: 1 MG, UNK
     Route: 048
     Dates: start: 20090730, end: 20100630
  5. MAGNESIUM OXIDE [Concomitant]
     Dosage: 990 MG, UNK
     Route: 048
     Dates: start: 20071120, end: 20110313
  6. DIOVAN [Suspect]
     Dosage: 80 MG, QD
     Route: 048
     Dates: start: 20110203, end: 20110309
  7. LOSARTAN POTASSIUM AND HYDROCHLOROTHIAZIDE [Concomitant]
     Dosage: 1 DF, UNK
     Route: 048
     Dates: start: 20070914, end: 20090729
  8. EPADEL [Concomitant]
     Dosage: 1200 MG, UNK
     Route: 048
     Dates: start: 20070914
  9. CARVEDILOL [Concomitant]
     Dosage: 2 DF, UNK
     Route: 048
  10. SODIUM BICARBONATE [Concomitant]
     Dosage: 3 G, UNK
     Route: 048
     Dates: start: 20080729
  11. DIOVAN [Suspect]
     Dosage: 40 MG, QD
     Route: 048
     Dates: start: 20110310
  12. CARVEDILOL [Concomitant]
     Dosage: 2 DF, UNK
     Route: 048
  13. ATELEC [Concomitant]
     Indication: HYPERTENSION
     Dosage: 1 DF, UNK
     Route: 048
     Dates: start: 20100901
  14. DIOVAN [Suspect]
     Dosage: 40 MG, QD
     Route: 048
     Dates: start: 20090729, end: 20090819
  15. LASIX [Suspect]
     Indication: HYPERTENSION
     Dosage: 1 DF, UNK
     Route: 048
     Dates: start: 20070621

REACTIONS (3)
  - BLOOD PRESSURE DIASTOLIC DECREASED [None]
  - ACUTE MYOCARDIAL INFARCTION [None]
  - LOSS OF CONSCIOUSNESS [None]
